FAERS Safety Report 4327975-3 (Version None)
Quarter: 2004Q1

REPORT INFORMATION
  Report Type: 
  Country: None (occurrence: None)
  Receive Date: 20040331
  Receipt Date: 20021129
  Transmission Date: 20041129
  Serious: Yes (Hospitalization, Disabling)
  Sender: FDA-Public Use
  Company Number: PHBS2002JP14750

PATIENT
  Age: 61 Year
  Sex: Male

DRUGS (7)
  1. GLEEVEC [Suspect]
     Indication: GASTROINTESTINAL STROMAL TUMOUR
     Dosage: 200 MG, BID
     Route: 048
     Dates: start: 20021013, end: 20021126
  2. BERIZYM [Concomitant]
     Dosage: 3 G/D
     Route: 048
     Dates: start: 20000608
  3. LAC B [Concomitant]
     Dosage: 1.5 G/D
     Route: 048
     Dates: end: 20021127
  4. URSO [Suspect]
     Dosage: 300 MG/D
     Route: 048
     Dates: end: 20021127
  5. ZYLORIC ^FAES^ [Concomitant]
     Dosage: 200 MG/D
     Route: 048
     Dates: start: 20020608
  6. AMOBAN [Concomitant]
     Dates: start: 20011221, end: 20020101
  7. CYANAMIDE [Concomitant]
     Dates: start: 20011221, end: 20020316

REACTIONS (7)
  - BLOOD LACTATE DEHYDROGENASE INCREASED [None]
  - COUGH [None]
  - DIARRHOEA [None]
  - EYELID OEDEMA [None]
  - INTERSTITIAL LUNG DISEASE [None]
  - LABORATORY TEST ABNORMAL [None]
  - PYREXIA [None]
